FAERS Safety Report 6366097-7 (Version None)
Quarter: 2009Q3

REPORT INFORMATION
  Report Type: 
  Country: None (occurrence: None)
  Receive Date: 20090920
  Receipt Date: 20090619
  Transmission Date: 20100115
  Serious: No
  Sender: FDA-Public Use
  Company Number: US-BAUSCH-2009BL003064

PATIENT
  Sex: Female

DRUGS (1)
  1. NEOMYCIN AND POLYMXIN B SULFATES AND HYDROCORTISONE [Suspect]
     Indication: DRUG USE FOR UNKNOWN INDICATION
     Route: 047
     Dates: start: 20090618, end: 20090618

REACTIONS (3)
  - DRUG DISPENSING ERROR [None]
  - EYE PAIN [None]
  - INCORRECT ROUTE OF DRUG ADMINISTRATION [None]
